FAERS Safety Report 15281766 (Version 5)
Quarter: 2019Q1

REPORT INFORMATION
  Report Type: Report from Study
  Country: US (occurrence: US)
  Receive Date: 20180815
  Receipt Date: 20190314
  Transmission Date: 20190417
  Serious: Yes (Other)
  Sender: FDA-Public Use
  Company Number: PHEH2018US033378

PATIENT
  Sex: Female

DRUGS (1)
  1. ENTRESTO [Suspect]
     Active Substance: SACUBITRIL\VALSARTAN
     Indication: PRODUCT USED FOR UNKNOWN INDICATION
     Dosage: UNK
     Route: 048
     Dates: start: 201806

REACTIONS (6)
  - Arthritis [Unknown]
  - Cyst [Unknown]
  - Hypotension [Unknown]
  - Fatigue [Unknown]
  - Gait inability [Unknown]
  - Vital functions abnormal [Unknown]
